FAERS Safety Report 8909949 (Version 1)
Quarter: 2012Q4

REPORT INFORMATION
  Report Type: 
  Country: AU (occurrence: AU)
  Receive Date: 20121115
  Receipt Date: 20121115
  Transmission Date: 20130627
  Serious: Yes (Other)
  Sender: FDA-Public Use
  Company Number: AU-PFIZER INC-2012284164

PATIENT
  Age: 3 None
  Sex: Male

DRUGS (1)
  1. PRISTIQ [Suspect]
     Indication: MAJOR DEPRESSIVE DISORDER NOS
     Dosage: 50 mg, 1x/day
     Route: 048

REACTIONS (1)
  - Hypotension [Recovered/Resolved]
